FAERS Safety Report 6343063-9 (Version None)
Quarter: 2009Q3

REPORT INFORMATION
  Report Type: 
  Country: None (occurrence: None)
  Receive Date: 20090908
  Receipt Date: 20090901
  Transmission Date: 20100115
  Serious: Yes (Hospitalization, Other)
  Sender: FDA-Public Use
  Company Number: US-WYE-H10807209

PATIENT
  Age: 54 Year
  Sex: Female
  Weight: 50 kg

DRUGS (13)
  1. TEMSIROLIMUS [Suspect]
     Indication: MULTIPLE MYELOMA
     Dosage: ^25 MG DAYS 1,8,15,22,19 EVERY 35 DAYS^
     Dates: start: 20090706, end: 20090101
  2. TEMSIROLIMUS [Suspect]
     Dates: start: 20090828, end: 20090828
  3. AMBIEN [Concomitant]
  4. DOCUSATE SODIUM [Concomitant]
  5. CYCLOSPORINE [Concomitant]
  6. SIMVASTATIN [Concomitant]
  7. NEUPOGEN [Concomitant]
  8. LEVOFLOXACIN [Concomitant]
  9. OXYCODONE [Concomitant]
  10. VALACYCLOVIR HCL [Concomitant]
  11. BORTEZOMIB [Suspect]
     Indication: MULTIPLE MYELOMA
     Dosage: 1.6 MG/M^2 DAYS 1,8,15,22 EVERY 35 DAYS
     Dates: start: 20090706, end: 20090101
  12. BORTEZOMIB [Suspect]
     Dates: start: 20090828, end: 20090828
  13. DEXAMETHASONE [Concomitant]

REACTIONS (1)
  - FEBRILE NEUTROPENIA [None]
